FAERS Safety Report 4979531-1 (Version None)
Quarter: 2006Q1

REPORT INFORMATION
  Report Type: 
  Country: None (occurrence: None)
  Receive Date: 20060223
  Receipt Date: 20050314
  Transmission Date: 20060701
  Serious: No
  Sender: FDA-Public Use
  Company Number: HQWYE244722MAR05

PATIENT
  Sex: Male

DRUGS (1)
  1. EFFEXOR [Suspect]

REACTIONS (3)
  - ASTHENIA [None]
  - SLEEP DISORDER [None]
  - SOMNOLENCE [None]
